FAERS Safety Report 19181693 (Version 3)
Quarter: 2021Q4

REPORT INFORMATION
  Report Type: Spontaneous
  Country: FR (occurrence: FR)
  Receive Date: 20210426
  Receipt Date: 20211119
  Transmission Date: 20220303
  Serious: Yes (Life-Threatening)
  Sender: FDA-Public Use
  Company Number: None

PATIENT
  Age: 74 Year
  Sex: Female
  Weight: 140 kg

DRUGS (3)
  1. CASPOFUNGIN ACETATE [Suspect]
     Active Substance: CASPOFUNGIN ACETATE
     Indication: Fungal infection
     Dosage: 70 MILLIGRAM, QD
     Route: 042
     Dates: start: 20210317, end: 20210317
  2. PIPERACILLIN SODIUM\TAZOBACTAM SODIUM [Suspect]
     Active Substance: PIPERACILLIN SODIUM\TAZOBACTAM SODIUM
     Indication: Septic shock
     Dosage: 12 GRAM, QD; 4 GRAM (G) X 3 PER DAY
     Route: 042
     Dates: start: 20210317, end: 20210317
  3. CLINDAMYCIN [Suspect]
     Active Substance: CLINDAMYCIN
     Indication: Septic shock
     Dosage: 2400 MILLIGRAM, QD
     Route: 042
     Dates: start: 20210317, end: 20210317

REACTIONS (1)
  - Anaphylactic shock [Recovered/Resolved]

NARRATIVE: CASE EVENT DATE: 20210317
